FAERS Safety Report 5454036-2 (Version None)
Quarter: 2007Q3

REPORT INFORMATION
  Report Type: 
  Country: None (occurrence: None)
  Receive Date: 20070917
  Receipt Date: 20070228
  Transmission Date: 20080115
  Serious: No
  Sender: FDA-Public Use
  Company Number: US-ASTRAZENECA-2006UW07083

PATIENT
  Age: 564 Month
  Sex: Female
  Weight: 136.4 kg

DRUGS (2)
  1. SEROQUEL [Suspect]
     Indication: DEPRESSION
     Dosage: 100 - 200 MG
     Route: 048
     Dates: start: 20030401, end: 20041201
  2. SEROQUEL [Suspect]
     Dosage: 100 - 200 MG
     Route: 048
     Dates: start: 20050101, end: 20051001

REACTIONS (6)
  - ANXIETY [None]
  - DEHYDRATION [None]
  - HYPOGLYCAEMIA [None]
  - NEPHROLITHIASIS [None]
  - POST-TRAUMATIC STRESS DISORDER [None]
  - TYPE 2 DIABETES MELLITUS [None]
